FAERS Safety Report 6557892-X (Version None)
Quarter: 2010Q1

REPORT INFORMATION
  Report Type: 
  Country: None (occurrence: None)
  Receive Date: 20100125
  Receipt Date: 20100104
  Transmission Date: 20100710
  Serious: No
  Sender: FDA-Public Use
  Company Number: 2010-00004

PATIENT
  Age: 44 Year
  Sex: Male
  Weight: 72.5755 kg

DRUGS (1)
  1. COLD REMEDY PLUS LIQUID-LOZ [Suspect]
     Dosage: EVERY 3 HRS FOR 1 DAY
     Dates: start: 20091231, end: 20091231

REACTIONS (2)
  - AGEUSIA [None]
  - ANOSMIA [None]
